FAERS Safety Report 8691075 (Version 2)
Quarter: 2013Q2

REPORT INFORMATION
  Report Type: Report from Study
  Country: FR (occurrence: BR)
  Receive Date: 20120730
  Receipt Date: 20130411
  Transmission Date: 20140414
  Serious: Yes (Hospitalization)
  Sender: FDA-Public Use
  Company Number: FR-009507513-1103FRA00090

PATIENT
  Age: 31 Year
  Sex: Male

DRUGS (7)
  1. RALTEGRAVIR POTASSIUM [Suspect]
     Indication: HIV INFECTION
     Dosage: 400 MG, BID
     Route: 048
     Dates: start: 20110214
  2. VIREAD [Suspect]
     Indication: HIV INFECTION
     Dosage: 300 MG, QD
     Route: 048
     Dates: start: 20110214
  3. EPIVIR [Suspect]
     Indication: HIV INFECTION
     Dosage: 300 MG, QD
     Route: 048
     Dates: start: 20110214
  4. RIFAMPIN [Suspect]
     Indication: TUBERCULOSIS
     Dosage: 600 MG, QD
     Route: 048
     Dates: start: 20110201
  5. ETHAMBUTOL HYDROCHLORIDE [Suspect]
     Indication: TUBERCULOSIS
     Dosage: 1100 MG, QD
     Route: 048
     Dates: start: 20110201
  6. ISONIAZID [Suspect]
     Indication: TUBERCULOSIS
     Dosage: 300 MG, QD
     Route: 048
     Dates: start: 20110201
  7. PYRAZINAMIDE [Suspect]
     Indication: TUBERCULOSIS
     Dosage: 600 MG, QD
     Route: 048
     Dates: start: 20110201

REACTIONS (1)
  - Deep vein thrombosis [Recovered/Resolved]
